FAERS Safety Report 7313342-7 (Version None)
Quarter: 2011Q1

REPORT INFORMATION
  Report Type: 
  Country: None (occurrence: None)
  Receive Date: 20110215
  Receipt Date: 20110215
  Transmission Date: 20110831
  Serious: Yes (Hospitalization)
  Sender: FDA-Public Use
  Company Number: None

PATIENT
  Age: 57 Year
  Sex: Male
  Weight: 91.173 kg

DRUGS (2)
  1. KEFLEX [Suspect]
     Indication: BRONCHITIS
     Dosage: 500 MG 4 TIMES PO
     Route: 048
  2. KEFLEX [Suspect]
     Indication: BRONCHITIS
     Dosage: 500 MG 4 TIMES PO
     Route: 048

REACTIONS (3)
  - VENTRICULAR TACHYCARDIA [None]
  - INFECTION [None]
  - ATRIAL FIBRILLATION [None]
